FAERS Safety Report 11228581 (Version 1)
Quarter: 2015Q2

REPORT INFORMATION
  Report Type: Spontaneous
  Country: US (occurrence: US)
  Receive Date: 20150630
  Receipt Date: 20150630
  Transmission Date: 20150821
  Serious: Yes (Death)
  Sender: FDA-Public Use
  Company Number: US-MEDA-2014050047

PATIENT
  Age: 40 Year
  Sex: Female

DRUGS (20)
  1. SOMA [Suspect]
     Active Substance: CARISOPRODOL
     Indication: SURGICAL FAILURE
  2. SOMA [Suspect]
     Active Substance: CARISOPRODOL
     Indication: BACK PAIN
  3. SOMA [Suspect]
     Active Substance: CARISOPRODOL
     Indication: BACK PAIN
  4. NORCO [Suspect]
     Active Substance: ACETAMINOPHEN\HYDROCODONE BITARTRATE
     Indication: POST LAMINECTOMY SYNDROME
  5. NORCO [Suspect]
     Active Substance: ACETAMINOPHEN\HYDROCODONE BITARTRATE
     Indication: PAIN
  6. NORCO [Suspect]
     Active Substance: ACETAMINOPHEN\HYDROCODONE BITARTRATE
     Indication: RADICULITIS
  7. MORPHINE SULFATE. [Suspect]
     Active Substance: MORPHINE SULFATE
     Indication: ANALGESIC THERAPY
  8. RESTORIL [Concomitant]
     Active Substance: TEMAZEPAM
     Indication: INSOMNIA
  9. SOMA [Suspect]
     Active Substance: CARISOPRODOL
     Indication: POST LAMINECTOMY SYNDROME
  10. NORCO [Suspect]
     Active Substance: ACETAMINOPHEN\HYDROCODONE BITARTRATE
     Indication: SURGICAL FAILURE
  11. SOMA [Suspect]
     Active Substance: CARISOPRODOL
     Indication: LUMBAR RADICULOPATHY
  12. SOMA [Suspect]
     Active Substance: CARISOPRODOL
     Indication: PAIN
  13. NORCO [Suspect]
     Active Substance: ACETAMINOPHEN\HYDROCODONE BITARTRATE
     Indication: BACK PAIN
  14. XANAX [Suspect]
     Active Substance: ALPRAZOLAM
     Indication: INSOMNIA
  15. LYRICA [Concomitant]
     Active Substance: PREGABALIN
  16. NORCO [Suspect]
     Active Substance: ACETAMINOPHEN\HYDROCODONE BITARTRATE
     Indication: LUMBAR RADICULOPATHY
  17. HALCION [Concomitant]
     Active Substance: TRIAZOLAM
     Indication: INSOMNIA
  18. XANAX [Suspect]
     Active Substance: ALPRAZOLAM
     Indication: ANXIETY
  19. SOMA [Suspect]
     Active Substance: CARISOPRODOL
     Indication: RADICULITIS
  20. NORCO [Suspect]
     Active Substance: ACETAMINOPHEN\HYDROCODONE BITARTRATE
     Indication: BACK PAIN

REACTIONS (2)
  - Depression [None]
  - Toxicity to various agents [Fatal]

NARRATIVE: CASE EVENT DATE: 20110108
